FAERS Safety Report 21662904 (Version 1)
Quarter: 2022Q4

REPORT INFORMATION
  Report Type: Spontaneous
  Country: DE (occurrence: DE)
  Receive Date: 20221130
  Receipt Date: 20221130
  Transmission Date: 20230113
  Serious: Yes (Other)
  Sender: FDA-Public Use
  Company Number: DE-ROCHE-3187091

PATIENT
  Age: 70 Year
  Sex: Female

DRUGS (9)
  1. BENDAMUSTINE HYDROCHLORIDE [Suspect]
     Active Substance: BENDAMUSTINE HYDROCHLORIDE
     Indication: Diffuse large B-cell lymphoma
     Dosage: 5TH LINE, P-BR
     Route: 065
     Dates: start: 20200310, end: 20200820
  2. LENALIDOMIDE [Suspect]
     Active Substance: LENALIDOMIDE
     Indication: Diffuse large B-cell lymphoma
     Dosage: UNK
     Route: 065
     Dates: start: 20211101, end: 20220801
  3. GEMCITABINE HYDROCHLORIDE\OXALIPLATIN [Suspect]
     Active Substance: GEMCITABINE HYDROCHLORIDE\OXALIPLATIN
     Indication: Diffuse large B-cell lymphoma
     Dosage: 4TH LINE
     Route: 065
     Dates: start: 20200107, end: 20200128
  4. RITUXIMAB [Suspect]
     Active Substance: RITUXIMAB
     Indication: Diffuse large B-cell lymphoma
     Dosage: 1ST LINE
     Route: 065
     Dates: start: 20170830, end: 20180129
  5. RITUXIMAB [Suspect]
     Active Substance: RITUXIMAB
     Dosage: 5TH LINE, P-BR
     Route: 065
     Dates: start: 20200310, end: 20200820
  6. POLATUZUMAB VEDOTIN [Suspect]
     Active Substance: POLATUZUMAB VEDOTIN
     Indication: Diffuse large B-cell lymphoma
     Dosage: 5TH LINE P-BR
     Route: 042
     Dates: start: 20200310, end: 20200820
  7. CYCLOPHOSPHAMIDE\DOXORUBICIN\PREDNISONE\VINCRISTINE [Suspect]
     Active Substance: CYCLOPHOSPHAMIDE\DOXORUBICIN\PREDNISONE\VINCRISTINE
     Indication: Diffuse large B-cell lymphoma
     Dosage: 1ST LINE
     Route: 065
     Dates: start: 20170830, end: 20180129
  8. CISPLATIN\CYTARABINE\DEXAMETHASONE [Suspect]
     Active Substance: CISPLATIN\CYTARABINE\DEXAMETHASONE
     Indication: Diffuse large B-cell lymphoma
     Dosage: 3RD LINE
     Route: 065
     Dates: start: 20191210, end: 20191210
  9. TAFASITAMAB-CXIX [Suspect]
     Active Substance: TAFASITAMAB-CXIX
     Indication: Diffuse large B-cell lymphoma
     Dosage: UNK
     Route: 065
     Dates: start: 20211101, end: 20220801

REACTIONS (2)
  - Lymphoma [Not Recovered/Not Resolved]
  - C-reactive protein increased [Unknown]

NARRATIVE: CASE EVENT DATE: 20180101
